FAERS Safety Report 4642762-4 (Version None)
Quarter: 2005Q2

REPORT INFORMATION
  Report Type: 
  Country: None (occurrence: None)
  Receive Date: 20050422
  Receipt Date: 20050414
  Transmission Date: 20051028
  Serious: Yes (Other)
  Sender: FDA-Public Use
  Company Number: PHEH2005US04344

PATIENT
  Age: 17 Year
  Sex: Female

DRUGS (7)
  1. ZELNORM [Suspect]
     Indication: GASTROINTESTINAL MOTILITY DISORDER
  2. KLONOPIN [Interacting]
  3. KEPPRA [Interacting]
  4. BACLOFEN [Interacting]
  5. ATIVAN [Interacting]
     Dosage: UNK, PRN
  6. DEPAKOTE [Interacting]
  7. PREVACID [Interacting]

REACTIONS (1)
  - MENTAL STATUS CHANGES [None]
